FAERS Safety Report 18758668 (Version 2)
Quarter: 2022Q1

REPORT INFORMATION
  Report Type: Spontaneous
  Country: US (occurrence: US)
  Receive Date: 20210120
  Receipt Date: 20220225
  Transmission Date: 20220423
  Serious: Yes (Hospitalization)
  Sender: FDA-Public Use
  Company Number: US-AUROBINDO-AUR-APL-2021-001968

PATIENT
  Age: 69 Year
  Sex: Female

DRUGS (2)
  1. PHENYTOIN [Suspect]
     Active Substance: PHENYTOIN
     Indication: Seizure
     Dosage: UNK
     Route: 065
  2. LEVETIRACETAM [Concomitant]
     Active Substance: LEVETIRACETAM
     Indication: Seizure
     Dosage: UNK
     Route: 065

REACTIONS (10)
  - Ataxia [Unknown]
  - Nausea [Recovered/Resolved]
  - Gait disturbance [Unknown]
  - Fall [Recovered/Resolved]
  - Vomiting [Unknown]
  - Dysarthria [Unknown]
  - Nystagmus [Unknown]
  - Cerebellar ataxia [Unknown]
  - Toxicity to various agents [Unknown]
  - Product dispensing error [Unknown]
